FAERS Safety Report 7815244-6 (Version None)
Quarter: 2011Q4

REPORT INFORMATION
  Report Type: 
  Country: None (occurrence: None)
  Receive Date: 20111014
  Receipt Date: 20110930
  Transmission Date: 20120403
  Serious: Yes (Hospitalization)
  Sender: FDA-Public Use
  Company Number: GB-BAUSCH-2011BL006765

PATIENT
  Age: 31 Day
  Sex: Female

DRUGS (7)
  1. PHENYLEPHRINE HCL [Suspect]
     Indication: DIAGNOSTIC PROCEDURE
     Route: 047
     Dates: start: 20110627, end: 20110627
  2. CAFFEINE CITRATE [Concomitant]
     Indication: RESPIRATORY FAILURE
     Route: 048
  3. CYCLOPENTOLATE HCL [Suspect]
     Indication: DIAGNOSTIC PROCEDURE
     Route: 047
     Dates: start: 20110627, end: 20110627
  4. CAFFEINE CITRATE [Concomitant]
     Indication: PREMATURE BABY
     Route: 048
  5. ABDEC [Concomitant]
     Indication: VITAMIN SUPPLEMENTATION
     Route: 048
  6. SYTRON [Concomitant]
     Route: 048
  7. FOLIC ACID [Concomitant]
     Indication: FOLATE DEFICIENCY
     Route: 048

REACTIONS (3)
  - APNOEA [None]
  - CONVULSION [None]
  - BRADYCARDIA [None]
